FAERS Safety Report 6780824-6 (Version None)
Quarter: 2010Q2

REPORT INFORMATION
  Report Type: 
  Country: None (occurrence: None)
  Receive Date: 20100621
  Receipt Date: 20100614
  Transmission Date: 20101027
  Serious: Yes (Hospitalization, Other)
  Sender: FDA-Public Use
  Company Number: US-BAYER-201022129NA

PATIENT
  Age: 33 Year
  Sex: Female
  Weight: 97 kg

DRUGS (1)
  1. MIRENA [Suspect]
     Indication: CONTRACEPTION
     Dosage: FREQUENCY CONTINUOUS
     Route: 015
     Dates: start: 20090101, end: 20100218

REACTIONS (8)
  - ABDOMINAL PAIN [None]
  - DYSPAREUNIA [None]
  - ENDOMETRITIS [None]
  - NIGHT SWEATS [None]
  - PYREXIA [None]
  - TREMOR [None]
  - UTERINE PAIN [None]
  - VAGINAL DISCHARGE [None]
